FAERS Safety Report 23424254 (Version 1)
Quarter: 2024Q1

REPORT INFORMATION
  Report Type: Spontaneous
  Country: US (occurrence: US)
  Receive Date: 20240120
  Receipt Date: 20240120
  Transmission Date: 20240410
  Serious: Yes (Hospitalization)
  Sender: FDA-Public Use
  Company Number: US-TEVA-VS-3136079

PATIENT
  Age: 62 Year

DRUGS (3)
  1. TESTOSTERONE [Suspect]
     Active Substance: TESTOSTERONE
     Indication: Hormone replacement therapy
     Dosage: TWICE WEEKLY
     Route: 030
  2. ANASTROZOLE [Concomitant]
     Active Substance: ANASTROZOLE
     Indication: Prostate cancer
     Route: 065
  3. LISINOPRIL [Concomitant]
     Active Substance: LISINOPRIL
     Indication: Hypertension
     Route: 065

REACTIONS (3)
  - Polycythaemia [Recovered/Resolved]
  - Venous occlusion [Recovering/Resolving]
  - Mesenteric vein thrombosis [Recovering/Resolving]
